FAERS Safety Report 18083153 (Version 1)
Quarter: 2020Q3

REPORT INFORMATION
  Report Type: Spontaneous
  Country: US (occurrence: US)
  Receive Date: 20200728
  Receipt Date: 20200728
  Transmission Date: 20201103
  Serious: No
  Sender: FDA-Public Use
  Company Number: US-PERRIGO-19US014954

PATIENT
  Age: 66 Year
  Sex: Male
  Weight: 104.31 kg

DRUGS (2)
  1. VITAMINS NOS [Concomitant]
     Active Substance: VITAMINS
     Indication: SUPPLEMENTATION THERAPY
     Dosage: UNK
     Route: 065
  2. MINOXIDIL. [Suspect]
     Active Substance: MINOXIDIL
     Indication: ALOPECIA
     Dosage: UNKNOWN, BID
     Route: 061
     Dates: start: 20191115, end: 20191126

REACTIONS (8)
  - Erythema [Recovering/Resolving]
  - Lacrimation increased [Recovering/Resolving]
  - Skin exfoliation [Recovering/Resolving]
  - Dizziness [Unknown]
  - Vision blurred [Recovering/Resolving]
  - Eye swelling [Recovering/Resolving]
  - Product administered at inappropriate site [Recovering/Resolving]
  - Metamorphopsia [Recovering/Resolving]

NARRATIVE: CASE EVENT DATE: 20191126
